FAERS Safety Report 9468047 (Version 1)
Quarter: 2013Q3

REPORT INFORMATION
  Report Type: Spontaneous
  Country: US (occurrence: US)
  Receive Date: 20130821
  Receipt Date: 20130821
  Transmission Date: 20140515
  Serious: No
  Sender: FDA-Public Use
  Company Number: US-TEVA-427141USA

PATIENT
  Sex: Male
  Weight: 79.45 kg

DRUGS (2)
  1. AZILECT [Suspect]
     Indication: PARKINSON^S DISEASE
     Route: 048
  2. CARBIDOPA W/LEVODOPA [Concomitant]

REACTIONS (1)
  - Dizziness [Not Recovered/Not Resolved]
